FAERS Safety Report 18650505 (Version 2)
Quarter: 2020Q4

REPORT INFORMATION
  Report Type: Spontaneous
  Country: JP (occurrence: JP)
  Receive Date: 20201223
  Receipt Date: 20201228
  Transmission Date: 20210114
  Serious: Yes (Other)
  Sender: FDA-Public Use
  Company Number: JP-JNJFOC-20201228990

PATIENT
  Age: 62 Year
  Sex: Female

DRUGS (1)
  1. REMINYL [Suspect]
     Active Substance: GALANTAMINE
     Indication: PRODUCT USED FOR UNKNOWN INDICATION
     Route: 048

REACTIONS (4)
  - Salivary hypersecretion [Not Recovered/Not Resolved]
  - Shock [Not Recovered/Not Resolved]
  - Renal impairment [Not Recovered/Not Resolved]
  - Bradycardia [Not Recovered/Not Resolved]
